FAERS Safety Report 7460704-3 (Version None)
Quarter: 2011Q2

REPORT INFORMATION
  Report Type: 
  Country: None (occurrence: None)
  Receive Date: 20110505
  Receipt Date: 20110429
  Transmission Date: 20111010
  Serious: Yes (Life-Threatening, Hospitalization)
  Sender: FDA-Public Use
  Company Number: CA-US-EMD SERONO, INC.-7044375

PATIENT
  Sex: Female

DRUGS (9)
  1. CRESTOR [Concomitant]
     Dates: end: 20110204
  2. ATIVAN [Concomitant]
     Dates: end: 20110204
  3. REBIF [Suspect]
     Dates: start: 20110218
  4. COVERSYL [Concomitant]
     Dates: end: 20110204
  5. OXYBUTYNIN [Concomitant]
     Dates: end: 20110204
  6. CITALOPRAM [Concomitant]
     Dates: end: 20110204
  7. RABEPRAZOLE SODIUM [Concomitant]
     Dates: end: 20110204
  8. REBIF [Suspect]
     Indication: MULTIPLE SCLEROSIS
     Dates: start: 19990120, end: 20110204
  9. BACLOFEN [Concomitant]
     Dates: end: 20110204

REACTIONS (9)
  - DYSPHAGIA [None]
  - MYOCARDIAL INFARCTION [None]
  - LOSS OF CONSCIOUSNESS [None]
  - RESPIRATORY ARREST [None]
  - PNEUMONIA ASPIRATION [None]
  - ROAD TRAFFIC ACCIDENT [None]
  - DIARRHOEA [None]
  - CARDIAC ARREST [None]
  - CHOKING [None]
